FAERS Safety Report 18375635 (Version 1)
Quarter: 2020Q4

REPORT INFORMATION
  Report Type: Spontaneous
  Country: US (occurrence: US)
  Receive Date: 20201009
  Receipt Date: 20201009
  Transmission Date: 20210114
  Serious: No
  Sender: FDA-Public Use
  Company Number: None

PATIENT
  Age: 57 Year
  Sex: Male
  Weight: 105.23 kg

DRUGS (1)
  1. TALTZ [Suspect]
     Active Substance: IXEKIZUMAB
     Indication: PSORIATIC ARTHROPATHY
     Dosage: INJECT 80MG (1 PEN) SUBCUTANEOUSLY EVERY 2 WEEKS  AT WEEKS  4 -12  AS DIRECTED
     Route: 058
     Dates: start: 202009

REACTIONS (1)
  - Death [None]
